FAERS Safety Report 8176237-5 (Version None)
Quarter: 2012Q1

REPORT INFORMATION
  Report Type: 
  Country: None (occurrence: None)
  Receive Date: 20120301
  Receipt Date: 20120222
  Transmission Date: 20120608
  Serious: Yes (Other)
  Sender: FDA-Public Use
  Company Number: US-JNJFOC-20120212228

PATIENT
  Sex: Female
  Weight: 96.62 kg

DRUGS (9)
  1. METHOTREXATE [Concomitant]
     Indication: ARTHRITIS
     Route: 048
     Dates: start: 20100101
  2. CALCIUM [Concomitant]
     Indication: NUTRITIONAL SUPPORT
     Route: 048
     Dates: start: 19920101
  3. REMICADE [Suspect]
     Indication: ARTHRITIS
     Route: 042
     Dates: start: 20111115
  4. PAXIL [Suspect]
     Indication: DEPRESSION
     Route: 065
  5. MULTI-VITAMINS [Concomitant]
     Indication: NUTRITIONAL SUPPORT
     Route: 048
     Dates: start: 19920101
  6. REMICADE [Suspect]
     Indication: CROHN'S DISEASE
     Route: 042
     Dates: start: 20111115
  7. ACETAMINOPHEN [Concomitant]
     Indication: PAIN
     Dosage: 2-3 TIMES A DAY
     Route: 048
     Dates: start: 20020101
  8. FOLIC ACID [Concomitant]
     Indication: ARTHRITIS
     Route: 048
     Dates: start: 20100101
  9. POTASSIUM CHLORIDE [Concomitant]
     Indication: DEHYDRATION
     Route: 048
     Dates: start: 20060101

REACTIONS (2)
  - DEPRESSION [None]
  - WEIGHT DECREASED [None]
